FAERS Safety Report 16793627 (Version 1)
Quarter: 2019Q3

REPORT INFORMATION
  Report Type: Spontaneous
  Country: BE (occurrence: BE)
  Receive Date: 20190911
  Receipt Date: 20190911
  Transmission Date: 20191005
  Serious: Yes (Other)
  Sender: FDA-Public Use
  Company Number: BE-TEVA-2019-BE-1103997

PATIENT
  Sex: Female

DRUGS (1)
  1. AMOXICILLINE [Suspect]
     Active Substance: AMOXICILLIN
     Indication: OROPHARYNGEAL PAIN
     Dosage: 1 DOSAGE FORMS
     Route: 048

REACTIONS (3)
  - Dyspnoea [Recovered/Resolved]
  - Prescription drug used without a prescription [Recovered/Resolved]
  - Hypersensitivity [Recovered/Resolved]
